FAERS Safety Report 4624522-3 (Version None)
Quarter: 2005Q1

REPORT INFORMATION
  Report Type: 
  Country: None (occurrence: None)
  Receive Date: 20050331
  Receipt Date: 20040513
  Transmission Date: 20050727
  Serious: Yes (Other)
  Sender: FDA-Public Use
  Company Number: US-AMGEN-US076416

PATIENT
  Sex: Male

DRUGS (7)
  1. PROCRIT [Suspect]
     Indication: PRE-EXISTING DISEASE
     Route: 058
     Dates: start: 20031010, end: 20040423
  2. RIBAVIRIN [Concomitant]
     Dates: start: 20000801, end: 20040226
  3. PEGULATED INTERFERON ALFA-2B [Concomitant]
     Dates: start: 20000801, end: 20040426
  4. NIFEDIPINE [Concomitant]
     Dates: start: 20040409
  5. HYDROCHLOROTHIAZIDE [Concomitant]
     Dates: start: 20020520
  6. CITRACAL [Concomitant]
     Dates: start: 20040409
  7. CELEXA [Concomitant]
     Dates: start: 20040409

REACTIONS (7)
  - ANTI-ERYTHROPOIETIN ANTIBODY POSITIVE [None]
  - BONE MARROW DEPRESSION [None]
  - DEPRESSION [None]
  - FATIGUE [None]
  - INJECTION SITE SWELLING [None]
  - PARVOVIRUS B19 SEROLOGY POSITIVE [None]
  - THERAPEUTIC RESPONSE DECREASED [None]
